FAERS Safety Report 4318077-0 (Version None)
Quarter: 2004Q1

REPORT INFORMATION
  Report Type: 
  Country: None (occurrence: None)
  Receive Date: 20040315
  Receipt Date: 20040304
  Transmission Date: 20041129
  Serious: Yes (Other)
  Sender: FDA-Public Use
  Company Number: US-JNJFOC-20040301396

PATIENT
  Age: 58 Year
  Sex: Female
  Weight: 90.7194 kg

DRUGS (11)
  1. REMICADE [Suspect]
     Indication: RHEUMATOID ARTHRITIS
     Dosage: 800 MG, INTRAVENOUS
     Route: 042
     Dates: start: 20040301
  2. METHOTREXATE [Concomitant]
  3. BEXTRA [Concomitant]
  4. EVOXAC [Concomitant]
  5. MAXIDE (DYAZIDE) [Concomitant]
  6. PROZAC [Concomitant]
  7. DETROL [Concomitant]
  8. LEUCOVORIN (FOLINIC ACID) [Concomitant]
  9. NEXIUM [Concomitant]
  10. ACTIVELLA (OESTRANORM) [Concomitant]
  11. FOLIC ACID [Concomitant]

REACTIONS (5)
  - BLOOD PRESSURE DECREASED [None]
  - BLOOD PRESSURE INCREASED [None]
  - HEART RATE IRREGULAR [None]
  - KNEE ARTHROPLASTY [None]
  - SHOULDER ARTHROPLASTY [None]
